FAERS Safety Report 14304474 (Version 1)
Quarter: 2017Q4

REPORT INFORMATION
  Report Type: Report from Study
  Country: JP (occurrence: JP)
  Receive Date: 20171219
  Receipt Date: 20171219
  Transmission Date: 20180321
  Serious: Yes (Hospitalization, Other)
  Sender: FDA-Public Use
  Company Number: JP-OTSUKA-004955

PATIENT
  Age: 27 Year
  Sex: Male

DRUGS (12)
  1. LINTON [Concomitant]
     Active Substance: HALOPERIDOL
     Indication: SCHIZOPHRENIA
     Dosage: 6 MG, QD
     Route: 048
     Dates: start: 20080226, end: 20080407
  2. LINTON [Concomitant]
     Active Substance: HALOPERIDOL
     Dosage: 4.5 MG, QD
     Route: 048
     Dates: start: 20080408, end: 20080529
  3. RILMAZAFONE HYDROCHLORIDE [Concomitant]
     Active Substance: RILMAZAFONE HYDROCHLORIDE
     Indication: SCHIZOPHRENIA
     Dosage: 4 MG, QD
     Route: 048
     Dates: start: 20080226, end: 20080529
  4. NEUCHLONIC [Concomitant]
     Indication: SCHIZOPHRENIA
     Dosage: 5 MG, QD
     Route: 048
     Dates: start: 20080226, end: 20080529
  5. RILMAZAFONE [Concomitant]
     Active Substance: RILMAZAFONE
     Dosage: UNK
     Dates: start: 20080226, end: 20080529
  6. ARIPIPRAZOLE. [Suspect]
     Active Substance: ARIPIPRAZOLE
     Indication: SCHIZOPHRENIA
     Dosage: 3 MG, QD
     Route: 048
     Dates: start: 20080325, end: 20080407
  7. TRIPODRINE [Concomitant]
     Dosage: 4 MG, QD
     Route: 048
     Dates: start: 20080226, end: 20080520
  8. ARIPIPRAZOLE. [Suspect]
     Active Substance: ARIPIPRAZOLE
     Dosage: 6 MG, QD
     Route: 048
     Dates: start: 20080408, end: 20080506
  9. TRIPODRINE [Concomitant]
     Dosage: 8 MG, QD
     Route: 048
     Dates: start: 20080521, end: 20080529
  10. LEXOTAN [Concomitant]
     Active Substance: BROMAZEPAM
     Dosage: 4 MG, QD
     Route: 048
     Dates: start: 20080226, end: 20080529
  11. TRIHEXYPHENIDYL HCL [Concomitant]
     Active Substance: TRIHEXYPHENIDYL HYDROCHLORIDE
     Dosage: FORMULATION: TABLET.
     Dates: start: 20080226, end: 20080529
  12. ARIPIPRAZOLE. [Suspect]
     Active Substance: ARIPIPRAZOLE
     Dosage: 12 MG, QD
     Route: 048
     Dates: start: 20080507, end: 20080529

REACTIONS (3)
  - Schizophrenia [Unknown]
  - Psychiatric symptom [Recovered/Resolved]
  - Overdose [Unknown]

NARRATIVE: CASE EVENT DATE: 2008
